FAERS Safety Report 7006582-8 (Version None)
Quarter: 2010Q3

REPORT INFORMATION
  Report Type: 
  Country: None (occurrence: None)
  Receive Date: 20100921
  Receipt Date: 20100921
  Transmission Date: 20110219
  Serious: No
  Sender: FDA-Public Use
  Company Number: None

PATIENT
  Sex: Male

DRUGS (1)
  1. LOVAZA [Suspect]
     Dosage: 4 TABLETS DAILY PO
     Route: 048
     Dates: start: 20100807, end: 20100920

REACTIONS (7)
  - BACK PAIN [None]
  - DIZZINESS [None]
  - FATIGUE [None]
  - HYPOAESTHESIA [None]
  - MYALGIA [None]
  - NEPHROLITHIASIS [None]
  - VISUAL IMPAIRMENT [None]
